FAERS Safety Report 7826059-7 (Version None)
Quarter: 2011Q4

REPORT INFORMATION
  Report Type: 
  Country: None (occurrence: None)
  Receive Date: 20111019
  Receipt Date: 20111007
  Transmission Date: 20120403
  Serious: Yes (Other)
  Sender: FDA-Public Use
  Company Number: FI-ELI_LILLY_AND_COMPANY-FI201110002363

PATIENT
  Sex: Female

DRUGS (8)
  1. POTASSIUM CHLORIDE [Concomitant]
     Dosage: 5 G, QD
  2. VICTOZA [Concomitant]
     Dosage: 0.6 MG, UNK
     Route: 058
     Dates: start: 20110701, end: 20110817
  3. ESTROGEL [Concomitant]
     Indication: HORMONE REPLACEMENT THERAPY
     Dosage: 2 DF, QD
  4. ORLOC [Concomitant]
     Dosage: 5 MG, QD
  5. BYETTA [Suspect]
     Indication: TYPE 2 DIABETES MELLITUS
     Dosage: 5 UG, BID
     Route: 058
     Dates: start: 20110819, end: 20110821
  6. AMITRID [Concomitant]
     Dosage: UNK, QD
  7. PULMICORT [Concomitant]
     Dosage: 200 UG, BID
     Route: 055
  8. PANTOPRAZOLE [Concomitant]
     Dosage: 20 MG, QD

REACTIONS (3)
  - SKIN DISCOLOURATION [None]
  - GASTRITIS [None]
  - HAEMATOCHEZIA [None]
